FAERS Safety Report 20833478 (Version 6)
Quarter: 2022Q3

REPORT INFORMATION
  Report Type: Report from Study
  Country: FI (occurrence: FI)
  Receive Date: 20220516
  Receipt Date: 20220721
  Transmission Date: 20221027
  Serious: Yes (Hospitalization, Other)
  Sender: FDA-Public Use
  Company Number: FI-MYLANLABS-2022M1034825

PATIENT
  Age: 39 Year
  Sex: Male

DRUGS (31)
  1. CLOZAPINE [Suspect]
     Active Substance: CLOZAPINE
     Indication: Schizophrenia
     Dosage: 500 MILLIGRAM, QD
     Route: 065
     Dates: end: 20220509
  2. CLOZAPINE [Suspect]
     Active Substance: CLOZAPINE
     Dosage: 500 MILLIGRAM, QD
     Route: 065
     Dates: start: 20160114, end: 2021
  3. CLOZAPINE [Suspect]
     Active Substance: CLOZAPINE
     Dosage: 650 MILLIGRAM, QD(START DATE: MAR/APR-2021)
     Route: 065
     Dates: start: 2021, end: 20210819
  4. CLOZAPINE [Suspect]
     Active Substance: CLOZAPINE
     Dosage: UNK
     Route: 065
     Dates: start: 20211105, end: 20211112
  5. CLOZAPINE [Suspect]
     Active Substance: CLOZAPINE
     Dosage: 700 MILLIGRAM, QD
     Route: 065
     Dates: start: 20211112, end: 20211203
  6. CLOZAPINE [Suspect]
     Active Substance: CLOZAPINE
     Dosage: 600 MILLIGRAM, QD
     Route: 065
     Dates: start: 20211203, end: 20211218
  7. CLOZAPINE [Suspect]
     Active Substance: CLOZAPINE
     Dosage: 700 MILLIGRAM, QD
     Route: 065
     Dates: start: 20211218, end: 202202
  8. CLOZAPINE [Suspect]
     Active Substance: CLOZAPINE
     Dosage: 650 MILLIGRAM, QD
     Route: 065
     Dates: start: 202202, end: 20220214
  9. CLOZAPINE [Suspect]
     Active Substance: CLOZAPINE
     Dosage: 750 MILLIGRAM, QD(DOSE DECREASED)
     Route: 065
     Dates: start: 20220214, end: 20220314
  10. CLOZAPINE [Suspect]
     Active Substance: CLOZAPINE
     Dosage: 650 MILLIGRAM, QD
     Route: 065
     Dates: start: 20220314, end: 20220321
  11. CLOZAPINE [Suspect]
     Active Substance: CLOZAPINE
     Dosage: UNK, QD(150 MG +500 MG)
     Route: 065
     Dates: start: 2015
  12. CLOZAPINE [Suspect]
     Active Substance: CLOZAPINE
     Dosage: 1 DOSAGE FORM, QD (150 MG+ 500 MG)
     Route: 065
     Dates: start: 2015
  13. CLOZAPINE [Suspect]
     Active Substance: CLOZAPINE
     Indication: Product used for unknown indication
     Dosage: UNK (LOW DOSE AGAIN)
     Route: 065
     Dates: start: 20220512
  14. CLOZAPINE [Suspect]
     Active Substance: CLOZAPINE
     Dosage: 500 MILLIGRAM, QD
     Route: 065
  15. CLOZAPINE [Suspect]
     Active Substance: CLOZAPINE
     Indication: Schizophrenia
     Dosage: UNK, QD(150MG +600MG)
     Route: 065
     Dates: start: 20210819, end: 20210921
  16. CLOZAPINE [Suspect]
     Active Substance: CLOZAPINE
     Dosage: 800 MILLIGRAM, QD
     Route: 065
     Dates: start: 20210921, end: 20211006
  17. CLOZAPINE [Suspect]
     Active Substance: CLOZAPINE
     Dosage: 850 MILLIGRAM, QD
     Route: 065
     Dates: start: 20211006, end: 20211009
  18. CLOZAPINE [Suspect]
     Active Substance: CLOZAPINE
     Dosage: 900 MILLIGRAM, QD
     Route: 065
     Dates: start: 20211009, end: 20211105
  19. CLOZAPINE [Suspect]
     Active Substance: CLOZAPINE
     Dosage: 650 MILLIGRAM(DOSE DECREASED)
     Route: 065
     Dates: start: 20220321, end: 20220505
  20. CLOZAPINE [Suspect]
     Active Substance: CLOZAPINE
     Dosage: UNK(150 MG + 350 MG)
     Route: 065
     Dates: start: 20220505, end: 20220509
  21. CLOZAPINE [Suspect]
     Active Substance: CLOZAPINE
     Indication: Product used for unknown indication
     Dosage: UNK
     Route: 065
     Dates: start: 20220512, end: 20220513
  22. LITHIUM CARBONATE [Suspect]
     Active Substance: LITHIUM CARBONATE
     Indication: Aggression
     Dosage: UNK
     Route: 065
     Dates: start: 202110, end: 202111
  23. LITHIUM CARBONATE [Suspect]
     Active Substance: LITHIUM CARBONATE
     Dosage: 300 MILLIGRAM
     Route: 065
     Dates: start: 202205
  24. LAMOTRIGINE [Concomitant]
     Active Substance: LAMOTRIGINE
     Dosage: UNK
     Route: 065
     Dates: start: 20160303
  25. VALPROATE [Concomitant]
     Active Substance: VALPROIC ACID
     Dosage: UNK, QD(500-1000 MG)
     Route: 065
  26. VALPROATE [Concomitant]
     Active Substance: VALPROIC ACID
     Dosage: 1000 MILLIGRAM
     Route: 065
     Dates: start: 2021, end: 202110
  27. ARIPIPRAZOLE [Concomitant]
     Active Substance: ARIPIPRAZOLE
     Dosage: UNK
     Route: 065
     Dates: start: 2020, end: 20210914
  28. LITHIUM CARBONATE [Concomitant]
     Active Substance: LITHIUM CARBONATE
     Dosage: UNK
     Route: 065
     Dates: start: 202106, end: 2021
  29. HALOPERIDOL [Concomitant]
     Active Substance: HALOPERIDOL
     Dosage: UNK, PRN(WHEN NEEDED)
     Route: 065
     Dates: start: 202203
  30. HALOPERIDOL [Concomitant]
     Active Substance: HALOPERIDOL
     Dosage: 2.5 MILLIGRAM, QD(ONCE DAILY)
     Route: 065
     Dates: start: 202109
  31. ZUCLOPENTHIXOL ACETATE [Concomitant]
     Active Substance: ZUCLOPENTHIXOL ACETATE
     Dosage: UNK, PRN(WHEN NEEDED)
     Route: 065
     Dates: start: 2021

REACTIONS (20)
  - Product dose omission issue [Unknown]
  - Neutropenia [Recovered/Resolved]
  - Aggression [Unknown]
  - Vomiting [Unknown]
  - Mental impairment [Unknown]
  - Nasopharyngitis [Unknown]
  - C-reactive protein increased [Recovering/Resolving]
  - Malabsorption [Unknown]
  - Drug level abnormal [Not Recovered/Not Resolved]
  - Body temperature increased [Unknown]
  - Infection [Unknown]
  - Malaise [Recovered/Resolved]
  - Neutrophil count decreased [Not Recovered/Not Resolved]
  - Respiratory tract infection [Unknown]
  - White blood cell count decreased [Unknown]
  - Eosinophil count decreased [Unknown]
  - Fatigue [Unknown]
  - Nausea [Recovered/Resolved]
  - C-reactive protein decreased [Unknown]
  - Off label use [Unknown]

NARRATIVE: CASE EVENT DATE: 20200101
